FAERS Safety Report 23527293 (Version 1)
Quarter: 2024Q1

REPORT INFORMATION
  Report Type: Spontaneous
  Country: FI (occurrence: FI)
  Receive Date: 20240215
  Receipt Date: 20240215
  Transmission Date: 20240410
  Serious: Yes (Disabling)
  Sender: FDA-Public Use
  Company Number: None

PATIENT
  Age: 28 Year
  Sex: Male

DRUGS (5)
  1. CLINDAMYCIN HYDROCHLORIDE [Suspect]
     Active Substance: CLINDAMYCIN HYDROCHLORIDE
     Indication: Tooth infection
     Dosage: 300 MG, 4X/DAY (THE FIRST TWO CAPSULES BEFORE THE START OF THE PROCEDURE.)
     Route: 048
     Dates: start: 20240206, end: 20240210
  2. ACETAMINOPHEN\CODEINE PHOSPHATE [Concomitant]
     Active Substance: ACETAMINOPHEN\CODEINE PHOSPHATE
     Indication: Back pain
     Dosage: 1-2 TABLETS 1-3 TIMES A DAY, AS NEEDED
     Route: 048
     Dates: start: 20240110
  3. SCATOL [Concomitant]
     Indication: Scab
     Dosage: 18 MG, SINGLE (FREQ: TOTAL, 6 TABLETS AS A SINGLE DOSE)
     Route: 048
     Dates: start: 20230116
  4. AERINAZE [DESLORATADINE;PSEUDOEPHEDRINE SULFATE] [Concomitant]
     Indication: Rhinitis allergic
     Dosage: 1-2 TABLETS/DAY, FOR NO MORE THAN 10 DAYS
     Route: 048
     Dates: start: 2010
  5. NORFLEX [Concomitant]
     Active Substance: ORPHENADRINE CITRATE
     Indication: Illness
     Dosage: 1 TABLET AS NEEDED, DAILY DOSE NO MORE THAN TWO TABLETS
     Route: 048
     Dates: start: 20231023

REACTIONS (3)
  - Anosmia [Not Recovered/Not Resolved]
  - Ageusia [Not Recovered/Not Resolved]
  - Off label use [Unknown]

NARRATIVE: CASE EVENT DATE: 20240206
